FAERS Safety Report 17162861 (Version 1)
Quarter: 2019Q4

REPORT INFORMATION
  Report Type: Spontaneous
  Country: US (occurrence: US)
  Receive Date: 20191216
  Receipt Date: 20191216
  Transmission Date: 20200122
  Serious: No
  Sender: FDA-Public Use
  Company Number: None

PATIENT
  Age: 48 Year
  Sex: Female
  Weight: 69.75 kg

DRUGS (5)
  1. EMGALITY [Suspect]
     Active Substance: GALCANEZUMAB-GNLM
     Indication: MIGRAINE
     Dates: start: 20190528, end: 20190625
  2. MAGNESIUM [Concomitant]
     Active Substance: MAGNESIUM
  3. TOPIRAMATE. [Concomitant]
     Active Substance: TOPIRAMATE
  4. MULTIVITAMIN [Concomitant]
     Active Substance: VITAMINS
  5. COQ10 [Concomitant]
     Active Substance: UBIDECARENONE

REACTIONS (3)
  - Neck pain [None]
  - Chest pain [None]
  - Arthralgia [None]

NARRATIVE: CASE EVENT DATE: 20190528
